FAERS Safety Report 8889814 (Version 2)
Quarter: 2013Q1

REPORT INFORMATION
  Report Type: Spontaneous
  Country: IT (occurrence: None)
  Receive Date: 20121031
  Receipt Date: 20121107
  Transmission Date: 20140127
  Serious: Yes (Hospitalization)
  Sender: FDA-Public Use
  Company Number: 2012AP003481

PATIENT
  Age: 80 Year
  Sex: Male

DRUGS (8)
  1. RAMIPRIL (RAMIPRIL) 2.5 MG [Suspect]
     Indication: HYPERTENSION
     Route: 048
     Dates: start: 20120101, end: 20120930
  2. AMLODIPINE BESYLATE [Suspect]
     Route: 048
     Dates: start: 20120101, end: 20120930
  3. BISOPROLOL [Suspect]
     Route: 048
     Dates: start: 20120101, end: 20120930
  4. FUROSEMIDE (FUROSEMIDE) [Suspect]
     Route: 048
     Dates: start: 20120101, end: 20120930
  5. NITROGLYCERIN [Suspect]
     Route: 062
     Dates: start: 20120101, end: 20120930
  6. SPIRONOLACTONE [Suspect]
     Route: 048
     Dates: start: 20120101, end: 20120930
  7. COUMADIN /00014802/ (WARFARIN SODIUM) [Concomitant]
  8. LANOXIN (DIGOXIN) [Concomitant]

REACTIONS (2)
  - Hypotension [None]
  - Syncope [None]
